FAERS Safety Report 12762721 (Version 1)
Quarter: 2016Q3

REPORT INFORMATION
  Report Type: Spontaneous
  Country: US (occurrence: US)
  Receive Date: 20160915
  Receipt Date: 20160915
  Transmission Date: 20161109
  Serious: No
  Sender: FDA-Public Use
  Company Number: None

PATIENT
  Age: 60 Year
  Sex: Female

DRUGS (1)
  1. RIBAVIRIN 200 MG UNSURE [Suspect]
     Active Substance: RIBAVIRIN
     Indication: HEPATITIS C
     Dosage: 600MG QAM AND QPM PO
     Route: 048
     Dates: start: 20160803, end: 20160810

REACTIONS (1)
  - Palpitations [None]

NARRATIVE: CASE EVENT DATE: 20160810
